FAERS Safety Report 14377786 (Version 4)
Quarter: 2018Q1

REPORT INFORMATION
  Report Type: Spontaneous
  Country: IE (occurrence: IE)
  Receive Date: 20180111
  Receipt Date: 20180302
  Transmission Date: 20180509
  Serious: Yes (Other)
  Sender: FDA-Public Use
  Company Number: IE-SAOL THERAPEUTICS-2017SAO03493

PATIENT
  Sex: Male

DRUGS (2)
  1. BACLOFEN. [Suspect]
     Active Substance: BACLOFEN
     Dosage: 435.1 ?G, \DAY
     Route: 037
  2. BACLOFEN. [Suspect]
     Active Substance: BACLOFEN
     Dosage: 524.0 ?G, \DAY
     Route: 037

REACTIONS (8)
  - Emotional distress [Not Recovered/Not Resolved]
  - Clonus [Not Recovered/Not Resolved]
  - Dystonia [Unknown]
  - Hypotonia [Unknown]
  - Unresponsive to stimuli [Unknown]
  - Muscle twitching [Not Recovered/Not Resolved]
  - Hypertonia [Not Recovered/Not Resolved]
  - Peripheral coldness [Not Recovered/Not Resolved]

NARRATIVE: CASE EVENT DATE: 2017
